FAERS Safety Report 23283829 (Version 2)
Quarter: 2024Q1

REPORT INFORMATION
  Report Type: Report from Study
  Country: US (occurrence: US)
  Receive Date: 20231211
  Receipt Date: 20240104
  Transmission Date: 20240410
  Serious: Yes (Other)
  Sender: FDA-Public Use
  Company Number: US-ABBVIE-5497271

PATIENT
  Age: 82 Year
  Sex: Female
  Weight: 51.7 kg

DRUGS (7)
  1. CREON [Suspect]
     Active Substance: PANCRELIPASE AMYLASE\PANCRELIPASE LIPASE\PANCRELIPASE PROTEASE
     Indication: Product used for unknown indication
     Dosage: STRENGTH :24000LU?DAILY
     Route: 048
     Dates: start: 20231101, end: 20231215
  2. VITAMIN E [Concomitant]
     Active Substance: .ALPHA.-TOCOPHEROL
     Indication: Product used for unknown indication
     Dates: start: 2005
  3. CALCIUM [Concomitant]
     Active Substance: CALCIUM
     Indication: Product used for unknown indication
     Dates: start: 2005
  4. VITAMIN D NOS [Concomitant]
     Active Substance: VITAMIN D NOS
     Indication: Product used for unknown indication
     Dosage: VIT D 50000
     Dates: start: 2005
  5. VITAMIN C [Concomitant]
     Active Substance: ASCORBIC ACID
     Indication: Product used for unknown indication
     Dates: start: 2005
  6. ESTRADIOL [Concomitant]
     Active Substance: ESTRADIOL
     Indication: Night sweats
     Dosage: ESTRADIOL PATCH?FREQUENCY TEXT: 2X WEEKLY
     Dates: start: 2010
  7. PROGESTERONE [Concomitant]
     Active Substance: PROGESTERONE
     Indication: Product used for unknown indication
     Dosage: PROGESTERONE  100?DAILY
     Dates: start: 2010

REACTIONS (8)
  - Pancreatic failure [Unknown]
  - Headache [Recovered/Resolved]
  - Enzyme level decreased [Unknown]
  - Asthenia [Recovered/Resolved]
  - Quality of life decreased [Unknown]
  - Abdominal pain upper [Recovered/Resolved]
  - Abdominal discomfort [Recovered/Resolved]
  - Dizziness [Recovered/Resolved]

NARRATIVE: CASE EVENT DATE: 20221101
